FAERS Safety Report 12253302 (Version 4)
Quarter: 2019Q4

REPORT INFORMATION
  Report Type: Spontaneous
  Country: CZ (occurrence: CZ)
  Receive Date: 20160411
  Receipt Date: 20191007
  Transmission Date: 20200122
  Serious: Yes (Other)
  Sender: FDA-Public Use
  Company Number: CZ-ELI_LILLY_AND_COMPANY-CZ201604003000

PATIENT
  Age: 37 Year
  Sex: Male

DRUGS (3)
  1. LEVOMEPROMAZIN [LEVOMEPROMAZINE] [Suspect]
     Active Substance: LEVOMEPROMAZINE
     Indication: SCHIZOPHRENIA
     Dosage: 25 MG, UNKNOWN
     Route: 065
  2. OLANZAPINE. [Suspect]
     Active Substance: OLANZAPINE
     Indication: SCHIZOPHRENIA
     Dosage: 10 MG, UNKNOWN
     Route: 065
  3. ZOTEPINE [Concomitant]
     Active Substance: ZOTEPINE
     Indication: SCHIZOPHRENIA
     Dosage: 100 MG

REACTIONS (3)
  - Weight increased [Unknown]
  - Deep vein thrombosis [Unknown]
  - Sedation [Unknown]
